FAERS Safety Report 4530321-3 (Version None)
Quarter: 2004Q4

REPORT INFORMATION
  Report Type: 
  Country: None (occurrence: None)
  Receive Date: 20041217
  Receipt Date: 20041209
  Transmission Date: 20050328
  Serious: Yes (Other)
  Sender: FDA-Public Use
  Company Number: DE-ROCHE-389064

PATIENT
  Age: 40 Year
  Sex: Female

DRUGS (2)
  1. PEGASYS [Suspect]
     Indication: HEPATITIS C
     Route: 058
  2. COPEGUS [Suspect]
     Indication: HEPATITIS C
     Route: 048

REACTIONS (4)
  - ARTERIOSPASM CORONARY [None]
  - HAEMOGLOBIN DECREASED [None]
  - LEUKOPENIA [None]
  - THROMBOCYTOPENIA [None]
